FAERS Safety Report 6495873-5 (Version None)
Quarter: 2009Q4

REPORT INFORMATION
  Report Type: 
  Country: None (occurrence: None)
  Receive Date: 20091214
  Receipt Date: 20090901
  Transmission Date: 20100525
  Serious: No
  Sender: FDA-Public Use
  Company Number: US-BRISTOL-MYERS SQUIBB COMPANY-14752034

PATIENT
  Age: 37 Year
  Sex: Female

DRUGS (2)
  1. ABILIFY [Suspect]
     Indication: BIPOLAR DISORDER
     Dosage: ALSO GIVEN ON 26MAY09
     Route: 048
     Dates: start: 20090101, end: 20090721
  2. ZYPREXA [Suspect]
     Indication: BIPOLAR DISORDER

REACTIONS (2)
  - AGITATION [None]
  - SLEEP-RELATED EATING DISORDER [None]
